FAERS Safety Report 8672537 (Version 3)
Quarter: 2012Q4

REPORT INFORMATION
  Report Type: 
  Country: FR (occurrence: FR)
  Receive Date: 20120719
  Receipt Date: 20121126
  Transmission Date: 20130627
  Serious: Yes (Death)
  Sender: FDA-Public Use
  Company Number: FR-BRISTOL-MYERS SQUIBB COMPANY-16755597

PATIENT
  Age: 76 Year
  Sex: Female
  Weight: 40 kg

DRUGS (8)
  1. ORENCIA FOR INJ 250 MG/VIAL [Suspect]
     Indication: RHEUMATOID ARTHRITIS
     Dosage: therapy duration: at least 2 years
     Dates: start: 201003, end: 201204
  2. LERCAN [Concomitant]
     Indication: HYPERTENSION
  3. CORTANCYL [Concomitant]
     Dates: start: 1999
  4. CALCIUM + VITAMIN D [Concomitant]
  5. HYPERIUM [Concomitant]
  6. KARDEGIC [Concomitant]
  7. GELUPRANE [Concomitant]
  8. ZOCOR [Concomitant]
     Indication: HYPERCHOLESTEROLAEMIA

REACTIONS (1)
  - Myocardial infarction [Fatal]
